FAERS Safety Report 25790561 (Version 1)
Quarter: 2025Q3

REPORT INFORMATION
  Report Type: Spontaneous
  Country: US (occurrence: US)
  Receive Date: 20250911
  Receipt Date: 20250911
  Transmission Date: 20251020
  Serious: No
  Sender: IDORSIA PHARMACEUTICALS
  Company Number: US-IDORSIA-011622-2025-US

PATIENT
  Sex: Female

DRUGS (1)
  1. QUVIVIQ [Suspect]
     Active Substance: DARIDOREXANT
     Indication: Product used for unknown indication
     Route: 065

REACTIONS (2)
  - Mental disorder [Unknown]
  - Confusional state [Unknown]
